FAERS Safety Report 16516325 (Version 1)
Quarter: 2019Q3

REPORT INFORMATION
  Report Type: Spontaneous
  Country: US (occurrence: US)
  Receive Date: 20190702
  Receipt Date: 20190702
  Transmission Date: 20191004
  Serious: No
  Sender: FDA-Public Use
  Company Number: US-PFM-2018-14743

PATIENT

DRUGS (1)
  1. HEMANGEOL [Suspect]
     Active Substance: PROPRANOLOL HYDROCHLORIDE
     Indication: PRODUCT USED FOR UNKNOWN INDICATION
     Dosage: 2.8 ML, QD (1/DAY)
     Route: 048

REACTIONS (3)
  - Off label use [Unknown]
  - Insomnia [Recovered/Resolved]
  - Inappropriate schedule of product administration [Unknown]
